FAERS Safety Report 5129454-2 (Version None)
Quarter: 2006Q4

REPORT INFORMATION
  Report Type: 
  Country: None (occurrence: None)
  Receive Date: 20061018
  Receipt Date: 20060926
  Transmission Date: 20070319
  Serious: Yes (Death)
  Sender: FDA-Public Use
  Company Number: JP-BRISTOL-MYERS SQUIBB COMPANY-13529623

PATIENT
  Age: 42 Year
  Sex: Male

DRUGS (11)
  1. ARIPIPRAZOLE [Suspect]
     Indication: SCHIZOPHRENIA
     Dosage: 6MG START DOSE ON 26-7-06, INCR TO 12MG ON 9-8-06, INCR. TO 18MG ON 23-8-06, INCR TO 24MG ON 6-9-06
     Route: 048
     Dates: start: 20060726, end: 20060924
  2. PEROSPIRONE [Concomitant]
     Route: 048
     Dates: start: 20060530, end: 20060829
  3. BIPERIDEN HYDROCHLORIDE TAB [Concomitant]
     Route: 048
     Dates: start: 20030530, end: 20060924
  4. HALOPERIDOL DECANOATE [Concomitant]
     Route: 030
     Dates: start: 20060520, end: 20060924
  5. PROFENAMINE [Concomitant]
     Route: 048
     Dates: start: 20060530, end: 20060924
  6. LORAZEPAM [Concomitant]
     Route: 048
     Dates: start: 20060530, end: 20060924
  7. CHLORPROMAZINE HIBENZATE [Concomitant]
     Route: 048
     Dates: start: 20060530, end: 20060924
  8. FLUNITRAZEPAM [Concomitant]
     Route: 048
     Dates: start: 20060530, end: 20060924
  9. ETIZOLAM [Concomitant]
     Route: 048
     Dates: start: 20060530, end: 20060924
  10. SENNOSIDE [Concomitant]
     Route: 048
     Dates: start: 20060530, end: 20060824
  11. FLUVOXAMINE MALEATE [Concomitant]
     Route: 048
     Dates: start: 20060530, end: 20060924

REACTIONS (1)
  - COMPLETED SUICIDE [None]
